FAERS Safety Report 17543931 (Version 2)
Quarter: 2020Q2

REPORT INFORMATION
  Report Type: Spontaneous
  Country: JP (occurrence: JP)
  Receive Date: 20200316
  Receipt Date: 20200407
  Transmission Date: 20200713
  Serious: Yes (Hospitalization)
  Sender: FDA-Public Use
  Company Number: NVSJ2020JP003175

PATIENT
  Age: 82 Year
  Sex: Male

DRUGS (1)
  1. EQUMET [Suspect]
     Active Substance: METFORMIN HYDROCHLORIDE\VILDAGLIPTIN
     Indication: TYPE 2 DIABETES MELLITUS
     Dosage: METFORMIN 500MG/VILDAGLIPTIN 50MG,UNK
     Route: 048
     Dates: start: 201606

REACTIONS (2)
  - Tongue neoplasm malignant stage unspecified [Unknown]
  - Oesophageal carcinoma [Unknown]
